FAERS Safety Report 5151453-5 (Version None)
Quarter: 2006Q4

REPORT INFORMATION
  Report Type: 
  Country: None (occurrence: None)
  Receive Date: 20061115
  Receipt Date: 20060920
  Transmission Date: 20070319
  Serious: Yes (Hospitalization)
  Sender: FDA-Public Use
  Company Number: ZA-ELI_LILLY_AND_COMPANY-ZA200609004997

PATIENT
  Age: 79 Year
  Sex: Female

DRUGS (5)
  1. DIGOXIN [Concomitant]
     Indication: ATRIAL FIBRILLATION
     Dosage: 0.25 MG, 2/D
     Route: 048
     Dates: start: 20060821
  2. ZIAK [Concomitant]
     Indication: HYPERTENSION
     Dosage: 2.5 MG, DAILY (1/D)
     Route: 048
     Dates: start: 20060821
  3. ASPIRIN [Concomitant]
     Indication: HYPERTENSION
     Dosage: 81 MG, DAILY (1/D)
     Route: 048
     Dates: start: 20060821
  4. CELEBREX [Concomitant]
     Indication: OSTEOARTHRITIS
     Dosage: 200 MG, DAILY (1/D)
     Route: 048
     Dates: start: 20060828
  5. EVISTA [Suspect]
     Indication: OSTEOPOROSIS
     Dosage: 60 MG, DAILY (1/D)
     Route: 048
     Dates: end: 20060918

REACTIONS (1)
  - ISCHAEMIC STROKE [None]
